FAERS Safety Report 8983277 (Version 1)
Quarter: 2012Q4

REPORT INFORMATION
  Report Type: 
  Country: US (occurrence: US)
  Receive Date: 20121221
  Receipt Date: 20121221
  Transmission Date: 20130627
  Serious: Yes (Hospitalization, Other)
  Sender: FDA-Public Use
  Company Number: US-B.I. PHARMACEUTICALS,INC./RIDGEFIELD-2012-BI-03629BP

PATIENT
  Age: 78 None
  Sex: Female
  Weight: 100 kg

DRUGS (8)
  1. SPIRIVA [Suspect]
     Indication: CHRONIC OBSTRUCTIVE PULMONARY DISEASE
     Dosage: 18 mcg
     Route: 055
     Dates: start: 2008
  2. ADVAIR [Suspect]
     Route: 055
     Dates: start: 2008
  3. ZOPINEX HFC [Concomitant]
     Route: 055
  4. COZAAR [Concomitant]
     Indication: CARDIAC DISORDER
     Dosage: 100 mg
     Route: 048
  5. FUROSIMIDE [Concomitant]
     Indication: DIURETIC THERAPY
     Route: 048
  6. ASPIRIN [Concomitant]
     Route: 048
  7. COREG [Concomitant]
     Dosage: 50 mg
     Route: 048
  8. OXYGEN [Concomitant]
     Dates: start: 2007

REACTIONS (7)
  - Pancreatitis acute [Not Recovered/Not Resolved]
  - Transient ischaemic attack [Recovered/Resolved with Sequelae]
  - Arthropathy [Recovered/Resolved]
  - Cholelithiasis [Unknown]
  - Oxygen consumption increased [Not Recovered/Not Resolved]
  - Dyspnoea [Not Recovered/Not Resolved]
  - Tremor [Not Recovered/Not Resolved]
